FAERS Safety Report 18544265 (Version 2)
Quarter: 2021Q1

REPORT INFORMATION
  Report Type: Report from Study
  Country: JP (occurrence: JP)
  Receive Date: 20201125
  Receipt Date: 20210322
  Transmission Date: 20210419
  Serious: Yes (Hospitalization, Other)
  Sender: FDA-Public Use
  Company Number: JP-AMGEN-JPNSP2020188636

PATIENT
  Age: 64 Year
  Sex: Male

DRUGS (6)
  1. DEXAMETHASONE. [Concomitant]
     Active Substance: DEXAMETHASONE
     Indication: PROPHYLAXIS
     Dosage: UNK
     Dates: start: 20190902, end: 20190902
  2. DEXAMETHASONE. [Concomitant]
     Active Substance: DEXAMETHASONE
     Dosage: UNK
     Dates: start: 20190909, end: 20190909
  3. BLINATUMOMAB [Suspect]
     Active Substance: BLINATUMOMAB
     Dosage: 28 MICROGRAM, QD
     Route: 041
     Dates: start: 20190909, end: 20190929
  4. BLINATUMOMAB [Suspect]
     Active Substance: BLINATUMOMAB
     Indication: B PRECURSOR TYPE ACUTE LEUKAEMIA
     Dosage: 9 MICROGRAM, QD
     Route: 041
     Dates: start: 20190902, end: 20190908
  5. LENOGRASTIM [Concomitant]
     Active Substance: LENOGRASTIM
     Dosage: 100 MICROGRAM, QD
  6. PREDONINE [Concomitant]
     Active Substance: PREDNISOLONE
     Dosage: UNK
     Dates: end: 20190910

REACTIONS (4)
  - Neuropathy peripheral [Unknown]
  - Rash [Unknown]
  - Cytokine release syndrome [Recovered/Resolved]
  - Neutropenia [Recovered/Resolved]

NARRATIVE: CASE EVENT DATE: 20190903
